FAERS Safety Report 5512544-X (Version None)
Quarter: 2007Q4

REPORT INFORMATION
  Report Type: 
  Country: None (occurrence: None)
  Receive Date: 20071112
  Receipt Date: 20070831
  Transmission Date: 20080405
  Serious: No
  Sender: FDA-Public Use
  Company Number: A0668700A

PATIENT
  Age: 57 Year
  Sex: Female
  Weight: 75 kg

DRUGS (3)
  1. AVANDAMET [Suspect]
     Indication: BLOOD GLUCOSE INCREASED
     Dosage: 4MG UNKNOWN
     Route: 048
     Dates: start: 20070501, end: 20070101
  2. AVANDIA [Suspect]
     Indication: BLOOD GLUCOSE INCREASED
     Route: 048
     Dates: start: 20070101, end: 20070101
  3. ZETIA [Concomitant]
     Indication: BLOOD CHOLESTEROL INCREASED

REACTIONS (5)
  - BLOOD CHOLESTEROL INCREASED [None]
  - DIZZINESS [None]
  - DRUG INEFFECTIVE [None]
  - HEART RATE INCREASED [None]
  - WEIGHT LOSS POOR [None]
